FAERS Safety Report 21422548 (Version 2)
Quarter: 2023Q1

REPORT INFORMATION
  Report Type: Other
  Country: US (occurrence: None)
  Receive Date: 20221007
  Receipt Date: 20230117
  Transmission Date: 20230418
  Serious: Yes (Hospitalization)
  Sender: FDA-Public Use
  Company Number: US-ROCHE-3191237

PATIENT
  Sex: Male

DRUGS (1)
  1. ZELBORAF [Suspect]
     Active Substance: VEMURAFENIB
     Indication: Hairy cell leukaemia
     Dosage: TAKE 4 TABLET(S) BY MOUTH (960MG) TWICE A DAY (TAKE WITH A FULL GLASS OF WATER WITH OR WITHOUT FOOD.
     Route: 048

REACTIONS (3)
  - Renal impairment [Unknown]
  - Renal function test abnormal [Unknown]
  - Off label use [Unknown]
